FAERS Safety Report 4703221-3 (Version None)
Quarter: 2005Q2

REPORT INFORMATION
  Report Type: 
  Country: None (occurrence: None)
  Receive Date: 20050629
  Receipt Date: 20050621
  Transmission Date: 20051028
  Serious: Yes (Hospitalization)
  Sender: FDA-Public Use
  Company Number: US-JNJFOC-20050605800

PATIENT
  Sex: Female
  Weight: 45.36 kg

DRUGS (10)
  1. REMICADE [Suspect]
     Route: 042
  2. REMICADE [Suspect]
     Indication: CROHN'S DISEASE
     Route: 042
  3. COUMADIN [Concomitant]
  4. HECTORAL [Concomitant]
     Indication: PARATHYROID DISORDER
  5. PROTONIX [Concomitant]
  6. STRESS TAB [Concomitant]
  7. BICARB [Concomitant]
  8. MAGNESIUM [Concomitant]
  9. MCT OIL [Concomitant]
  10. COSTERAL [Concomitant]

REACTIONS (3)
  - HYPERPARATHYROIDISM [None]
  - PLATELET TRANSFUSION [None]
  - WHOLE BLOOD TRANSFUSION [None]
